FAERS Safety Report 19928398 (Version 1)
Quarter: 2021Q4

REPORT INFORMATION
  Report Type: Spontaneous
  Country: MY (occurrence: MY)
  Receive Date: 20211006
  Receipt Date: 20211006
  Transmission Date: 20220303
  Serious: Yes (Disabling)
  Sender: FDA-Public Use
  Company Number: None

PATIENT
  Age: 31 Year
  Sex: Male
  Weight: 76 kg

DRUGS (7)
  1. DYNASTAT [Suspect]
     Active Substance: PARECOXIB SODIUM
     Dosage: ?          OTHER FREQUENCY:STAT;
     Route: 042
     Dates: start: 20210603, end: 20210603
  2. ASPIRIN [Concomitant]
     Active Substance: ASPIRIN
  3. ATORVASTATIN [Concomitant]
     Active Substance: ATORVASTATIN
  4. BISOPROLOL [Concomitant]
     Active Substance: BISOPROLOL
  5. EMMPAGLIFLOZIN [Concomitant]
  6. RAMIPRIL [Concomitant]
     Active Substance: RAMIPRIL
  7. RIVAROXABAN [Concomitant]
     Active Substance: RIVAROXABAN

REACTIONS (10)
  - Cerebrovascular accident [None]
  - Cough [None]
  - Influenza [None]
  - Ear pain [None]
  - Cardiac failure [None]
  - Myocardial infarction [None]
  - Diabetes mellitus [None]
  - Hypertension [None]
  - Intracardiac thrombus [None]
  - Upper respiratory tract infection [None]

NARRATIVE: CASE EVENT DATE: 20210603
